FAERS Safety Report 15515928 (Version 1)
Quarter: 2018Q4

REPORT INFORMATION
  Report Type: Other
  Country: TR (occurrence: TR)
  Receive Date: 20181017
  Receipt Date: 20181017
  Transmission Date: 20190205
  Serious: Yes (Other)
  Sender: FDA-Public Use
  Company Number: TR-DENTSPLY-2018SCDP000456

PATIENT
  Age: 47 Year
  Sex: Female

DRUGS (1)
  1. LIDOCAINE HYDROCHLORIDE AND EPINEPHRINE BITARTRATE [Suspect]
     Active Substance: EPINEPHRINE BITARTRATE\LIDOCAINE HYDROCHLORIDE
     Indication: INFILTRATION ANAESTHESIA
     Dosage: 5 ML, USING A 22-GAUGE NEEDLE FOR LOCAL INFILTRATION ANESTHESIA

REACTIONS (2)
  - Paralysis recurrent laryngeal nerve [Recovered/Resolved]
  - Vocal cord paralysis [Recovered/Resolved]
